FAERS Safety Report 19765875 (Version 1)
Quarter: 2021Q3

REPORT INFORMATION
  Report Type: Other
  Country: US (occurrence: US)
  Receive Date: 20210830
  Receipt Date: 20210830
  Transmission Date: 20211014
  Serious: No
  Sender: FDA-Public Use
  Company Number: US-ROCHE-2892928

PATIENT
  Age: 34 Year
  Sex: Female
  Weight: 99.88 kg

DRUGS (5)
  1. ZOLPIDEM [Concomitant]
     Active Substance: ZOLPIDEM TARTRATE
     Indication: INSOMNIA
     Dosage: STARTED ABOUT 2015 SOMETIMES TAKES HALF A PILL
     Route: 048
  2. OCREVUS [Suspect]
     Active Substance: OCRELIZUMAB
     Indication: RELAPSING MULTIPLE SCLEROSIS
     Dosage: YES
     Route: 042
     Dates: start: 201907
  3. MODAFINIL. [Concomitant]
     Active Substance: MODAFINIL
     Route: 048
  4. MODAFINIL. [Concomitant]
     Active Substance: MODAFINIL
     Dosage: ONGOING NO
     Route: 048
     Dates: start: 202001
  5. BENADRYL [Concomitant]
     Active Substance: DIPHENHYDRAMINE HYDROCHLORIDE

REACTIONS (7)
  - Weight loss poor [Not Recovered/Not Resolved]
  - Pain [Not Recovered/Not Resolved]
  - Fall [Unknown]
  - Muscle spasms [Recovered/Resolved]
  - Cholelithiasis [Not Recovered/Not Resolved]
  - Somnolence [Recovering/Resolving]
  - Off label use [Unknown]

NARRATIVE: CASE EVENT DATE: 201910
